FAERS Safety Report 7861460-7 (Version None)
Quarter: 2011Q4

REPORT INFORMATION
  Report Type: 
  Country: None (occurrence: None)
  Receive Date: 20111027
  Receipt Date: 20111019
  Transmission Date: 20120403
  Serious: Yes (Life-Threatening, Hospitalization)
  Sender: FDA-Public Use
  Company Number: JP-PFIZER INC-2011237916

PATIENT
  Age: 51 Year
  Sex: Female
  Weight: 76 kg

DRUGS (4)
  1. SOLON [Concomitant]
     Dosage: UNK
     Dates: start: 20110902, end: 20110905
  2. KELNAC [Concomitant]
     Dosage: UNK
     Route: 048
     Dates: start: 20110805, end: 20110901
  3. ARTZ [Concomitant]
     Dosage: UNK
     Dates: start: 20110812
  4. CELECOXIB [Suspect]
     Dosage: 100 MG, 2X/DAY
     Route: 048
     Dates: start: 20110805, end: 20110905

REACTIONS (1)
  - PULMONARY OEDEMA [None]
